FAERS Safety Report 6527777-3 (Version None)
Quarter: 2009Q4

REPORT INFORMATION
  Report Type: 
  Country: None (occurrence: None)
  Receive Date: 20091231
  Receipt Date: 20091221
  Transmission Date: 20100525
  Serious: Yes (Other)
  Sender: FDA-Public Use
  Company Number: 8054510

PATIENT
  Weight: 60 kg

DRUGS (4)
  1. CERTOLIZUMAB PEGOL (CERTOLIZUMAB PEGOL) [Suspect]
     Indication: RHEUMATOID ARTHRITIS
     Dosage: (200 MG 1X/2 WEEKS SUBCUTANEOUS), (400 MG QOD, - NR OF DOSES :31 SUBCUTANEOUS), ( 200 MG 1X/2 WEEKS,
     Route: 058
     Dates: start: 20051228, end: 20060612
  2. CERTOLIZUMAB PEGOL (CERTOLIZUMAB PEGOL) [Suspect]
     Indication: RHEUMATOID ARTHRITIS
     Dosage: (200 MG 1X/2 WEEKS SUBCUTANEOUS), (400 MG QOD, - NR OF DOSES :31 SUBCUTANEOUS), ( 200 MG 1X/2 WEEKS,
     Route: 058
     Dates: start: 20060612, end: 20071211
  3. CERTOLIZUMAB PEGOL (CERTOLIZUMAB PEGOL) [Suspect]
     Indication: RHEUMATOID ARTHRITIS
     Dosage: (200 MG 1X/2 WEEKS SUBCUTANEOUS), (400 MG QOD, - NR OF DOSES :31 SUBCUTANEOUS), ( 200 MG 1X/2 WEEKS,
     Route: 058
     Dates: start: 20071225, end: 20091110
  4. CERTOLIZUMAB PEGOL (CERTOLIZUMAB PEGOL) [Suspect]
     Indication: RHEUMATOID ARTHRITIS
     Dosage: (200 MG 1X/2 WEEKS SUBCUTANEOUS), (400 MG QOD, - NR OF DOSES :31 SUBCUTANEOUS), ( 200 MG 1X/2 WEEKS,
     Route: 058
     Dates: start: 20091208

REACTIONS (1)
  - ESCHERICHIA URINARY TRACT INFECTION [None]
